FAERS Safety Report 7334255-0 (Version None)
Quarter: 2011Q1

REPORT INFORMATION
  Report Type: 
  Country: None (occurrence: None)
  Receive Date: 20110307
  Receipt Date: 20110303
  Transmission Date: 20110831
  Serious: Yes (Other)
  Sender: FDA-Public Use
  Company Number: US-PFIZER INC-2011047394

PATIENT
  Sex: Female
  Weight: 103 kg

DRUGS (2)
  1. ALPRAZOLAM [Concomitant]
     Dosage: UNK, AS NEEDED
  2. CHANTIX [Suspect]
     Indication: SMOKING CESSATION THERAPY
     Dosage: UNK
     Route: 048
     Dates: start: 20110201, end: 20110303

REACTIONS (2)
  - SALIVARY DUCT OBSTRUCTION [None]
  - SALIVARY GLAND MASS [None]
